FAERS Safety Report 9851333 (Version 3)
Quarter: 2014Q2

REPORT INFORMATION
  Report Type: Report from Study
  Country: US (occurrence: US)
  Receive Date: 20140129
  Receipt Date: 20140512
  Transmission Date: 20141212
  Serious: Yes (Other)
  Sender: FDA-Public Use
  Company Number: US-ROCHE-1340486

PATIENT
  Sex: Male

DRUGS (2)
  1. LUCENTIS [Suspect]
     Indication: AGE-RELATED MACULAR DEGENERATION
     Dosage: RIGHT EYE
     Route: 065
  2. LUCENTIS [Suspect]
     Indication: METAMORPHOPSIA

REACTIONS (4)
  - Visual acuity reduced [Unknown]
  - Cataract [Unknown]
  - Fatigue [Unknown]
  - Laryngitis [Unknown]
